FAERS Safety Report 16706456 (Version 1)
Quarter: 2019Q3

REPORT INFORMATION
  Report Type: Spontaneous
  Country: US (occurrence: US)
  Receive Date: 20190628
  Receipt Date: 20190628
  Transmission Date: 20191004
  Serious: Yes (Hospitalization, Other)
  Sender: FDA-Public Use
  Company Number: None

PATIENT
  Age: 69 Year
  Sex: Male

DRUGS (16)
  1. OPSUMIT [Suspect]
     Active Substance: MACITENTAN
     Indication: PULMONARY ARTERIAL HYPERTENSION
     Route: 048
     Dates: start: 201606
  2. TORSEMIDE. [Concomitant]
     Active Substance: TORSEMIDE
  3. APIXABAN [Concomitant]
     Active Substance: APIXABAN
  4. ATORVASTATIN [Concomitant]
     Active Substance: ATORVASTATIN
  5. SILDENAFIL. [Concomitant]
     Active Substance: SILDENAFIL
  6. TYVASO [Concomitant]
     Active Substance: TREPROSTINIL
  7. AMIODARONE [Concomitant]
     Active Substance: AMIODARONE
  8. GABAPENTIN. [Concomitant]
     Active Substance: GABAPENTIN
  9. ALLOPURINOL. [Concomitant]
     Active Substance: ALLOPURINOL
  10. EPLERENONE. [Concomitant]
     Active Substance: EPLERENONE
  11. FAMOTIDINE. [Concomitant]
     Active Substance: FAMOTIDINE
  12. NARCAN [Concomitant]
     Active Substance: NALOXONE HYDROCHLORIDE
  13. NORCO [Concomitant]
     Active Substance: ACETAMINOPHEN\HYDROCODONE BITARTRATE
  14. TRAZODONE [Concomitant]
     Active Substance: TRAZODONE HYDROCHLORIDE
  15. ALBUTERNOL HFA [Concomitant]
  16. ASPIRIN. [Concomitant]
     Active Substance: ASPIRIN

REACTIONS (4)
  - Dyspnoea [None]
  - Peripheral swelling [None]
  - Cardiac failure congestive [None]
  - Corneal abrasion [None]

NARRATIVE: CASE EVENT DATE: 20190531
